FAERS Safety Report 4558339-5 (Version None)
Quarter: 2005Q1

REPORT INFORMATION
  Report Type: 
  Country: None (occurrence: None)
  Receive Date: 20050121
  Receipt Date: 20040426
  Transmission Date: 20050727
  Serious: No
  Sender: FDA-Public Use
  Company Number: US-BRISTOL-MYERS SQUIBB COMPANY-12570578

PATIENT
  Age: 6 Year
  Sex: Female
  Weight: 20 kg

DRUGS (5)
  1. CEFZIL [Suspect]
     Indication: CHRONIC SINUSITIS
     Dosage: DOSAGE FORM=TEASPOON
     Route: 048
     Dates: start: 20040201, end: 20040221
  2. AUGMENTIN '125' [Concomitant]
  3. FLONASE [Concomitant]
  4. TUMS [Concomitant]
  5. CENTRUM JR [Concomitant]

REACTIONS (3)
  - OEDEMA PERIPHERAL [None]
  - URTICARIA GENERALISED [None]
  - UVULITIS [None]
